FAERS Safety Report 9281525 (Version 2)
Quarter: 2013Q2

REPORT INFORMATION
  Report Type: Report from Study
  Country: US (occurrence: US)
  Receive Date: 20130509
  Receipt Date: 20130516
  Transmission Date: 20140414
  Serious: Yes (Hospitalization, Other)
  Sender: FDA-Public Use
  Company Number: US-US-EMD SERONO, INC.-7209437

PATIENT
  Age: 65 Year
  Sex: Female
  Weight: 103 kg

DRUGS (9)
  1. REBIF [Suspect]
     Indication: MULTIPLE SCLEROSIS
     Dates: end: 201010
  2. REBIF [Suspect]
     Route: 058
     Dates: start: 20110522
  3. BACLOFEN [Concomitant]
     Indication: MUSCLE SPASMS
     Route: 048
     Dates: start: 20120515
  4. GABAPENTIN [Concomitant]
     Indication: PRODUCT USED FOR UNKNOWN INDICATION
     Dosage: 5MG-160MG
     Route: 048
     Dates: start: 20120515
  5. GEMFIBROZIL [Concomitant]
     Indication: PRODUCT USED FOR UNKNOWN INDICATION
  6. LEVOTHYROXINE [Concomitant]
     Indication: PRODUCT USED FOR UNKNOWN INDICATION
  7. NORTRIPTYLINE [Concomitant]
     Indication: MIGRAINE
  8. NORTRIPTYLINE [Concomitant]
  9. SERTRALINE [Concomitant]
     Indication: PRODUCT USED FOR UNKNOWN INDICATION

REACTIONS (13)
  - Spinal compression fracture [Recovering/Resolving]
  - Head injury [Recovering/Resolving]
  - Back injury [Recovering/Resolving]
  - Fall [Recovering/Resolving]
  - Balance disorder [Recovering/Resolving]
  - Carpal tunnel syndrome [Unknown]
  - Osteoarthritis [Not Recovered/Not Resolved]
  - Muscular weakness [Unknown]
  - Visual impairment [Unknown]
  - Urinary incontinence [Unknown]
  - Gait disturbance [Unknown]
  - Somnolence [Unknown]
  - Arthralgia [Unknown]
